FAERS Safety Report 7266441 (Version 4)
Quarter: 2020Q3

REPORT INFORMATION
  Report Type: Report from Study
  Country: JP (occurrence: JP)
  Receive Date: 20100131
  Receipt Date: 20111123
  Transmission Date: 20201104
  Serious: Yes (Hospitalization, Other)
  Sender: FDA-Public Use
  Company Number: JP-JNJFOC-20091201836

PATIENT
  Age: 67 Year
  Sex: Female
  Weight: 36.6 kg

DRUGS (8)
  1. PENTASA [Concomitant]
     Active Substance: MESALAMINE
     Indication: COLITIS ULCERATIVE
  2. FERROMIA [Concomitant]
     Active Substance: SODIUM FERROUS CITRATE
     Dates: start: 20090820
  3. GOLIMUMAB [Suspect]
     Active Substance: GOLIMUMAB
     Indication: COLITIS ULCERATIVE
     Route: 058
     Dates: start: 20091116
  4. IRON SUCROSE [Concomitant]
     Active Substance: IRON SUCROSE
     Dates: start: 20091109
  5. GASTER [Concomitant]
     Active Substance: FAMOTIDINE
     Dates: start: 20070807
  6. IMURAN [Concomitant]
     Active Substance: AZATHIOPRINE
     Indication: COLITIS ULCERATIVE
  7. ACTONEL [Concomitant]
     Active Substance: RISEDRONATE SODIUM
     Dates: start: 20081007
  8. GOLIMUMAB [Suspect]
     Active Substance: GOLIMUMAB
     Route: 058

REACTIONS (1)
  - Rectal cancer [Recovered/Resolved]

NARRATIVE: CASE EVENT DATE: 20091130
